FAERS Safety Report 13760346 (Version 8)
Quarter: 2018Q1

REPORT INFORMATION
  Report Type: Report from Study
  Country: US (occurrence: US)
  Receive Date: 20170717
  Receipt Date: 20180312
  Transmission Date: 20180508
  Serious: Yes (Other)
  Sender: FDA-Public Use
  Company Number: PHEH2017US021857

PATIENT
  Age: 12 Year
  Sex: Female
  Weight: 48.3 kg

DRUGS (7)
  1. ILARIS [Suspect]
     Active Substance: CANAKINUMAB
     Dosage: UNK
     Route: 065
     Dates: start: 20171020
  2. ILARIS [Suspect]
     Active Substance: CANAKINUMAB
     Indication: CRYOPYRIN ASSOCIATED PERIODIC SYNDROME
     Dosage: 300 MG, QMO
     Route: 058
  3. ILARIS [Suspect]
     Active Substance: CANAKINUMAB
     Indication: TUMOUR NECROSIS FACTOR RECEPTOR-ASSOCIATED PERIODIC SYNDROME
     Dosage: 300 MG, EVERY 28 DAYS
     Route: 065
     Dates: start: 20160506
  4. ILARIS [Suspect]
     Active Substance: CANAKINUMAB
     Indication: JUVENILE IDIOPATHIC ARTHRITIS
     Dosage: 180 MG, QMO
     Route: 058
     Dates: start: 20161101
  5. ILARIS [Suspect]
     Active Substance: CANAKINUMAB
     Dosage: 180 MG, QMO
     Route: 058
     Dates: start: 20170608
  6. FLONASE [Concomitant]
     Active Substance: FLUTICASONE PROPIONATE
     Indication: RHINITIS ALLERGIC
     Dosage: 1 DF (SPRAY), QD
     Route: 045
  7. ILARIS [Suspect]
     Active Substance: CANAKINUMAB
     Dosage: UNK
     Route: 065
     Dates: start: 20180112

REACTIONS (14)
  - Pyrexia [Unknown]
  - Eczema [Unknown]
  - Rash [Recovered/Resolved]
  - Injection site reaction [Recovered/Resolved]
  - Oropharyngeal pain [Unknown]
  - Mast cell activation syndrome [Unknown]
  - Rhinitis allergic [Unknown]
  - Sneezing [Unknown]
  - Cough [Unknown]
  - Injection site vesicles [Unknown]
  - Injection site pruritus [Unknown]
  - Nasal congestion [Unknown]
  - Injection site pain [Not Recovered/Not Resolved]
  - Conjunctivitis allergic [Unknown]

NARRATIVE: CASE EVENT DATE: 20170608
